FAERS Safety Report 12760680 (Version 1)
Quarter: 2016Q3

REPORT INFORMATION
  Report Type: Spontaneous
  Country: US (occurrence: US)
  Receive Date: 20160919
  Receipt Date: 20160919
  Transmission Date: 20161109
  Serious: Yes (Hospitalization)
  Sender: FDA-Public Use
  Company Number: PHHY2016US126213

PATIENT
  Age: 3 Month
  Weight: 6.1 kg

DRUGS (9)
  1. PIPERACILIN/TAZOBACTAM [Concomitant]
     Active Substance: PIPERACILLIN SODIUM\TAZOBACTAM SODIUM
     Indication: PNEUMONIA
     Route: 065
  2. CIPROFLOXACIN. [Concomitant]
     Active Substance: CIPROFLOXACIN
     Indication: PNEUMONIA
     Dosage: UNK
     Route: 042
  3. PIPERACILIN/TAZOBACTAM [Concomitant]
     Active Substance: PIPERACILLIN SODIUM\TAZOBACTAM SODIUM
     Indication: ASPIRATION
  4. LINEZOLID. [Suspect]
     Active Substance: LINEZOLID
     Indication: PNEUMONIA
     Route: 042
  5. DOPAMINE [Interacting]
     Active Substance: DOPAMINE\DOPAMINE HYDROCHLORIDE
     Indication: OXYGEN SATURATION
  6. DOPAMINE [Interacting]
     Active Substance: DOPAMINE\DOPAMINE HYDROCHLORIDE
     Indication: VENTRICULAR SEPTAL DEFECT
  7. CIPROFLOXACIN. [Concomitant]
     Active Substance: CIPROFLOXACIN
     Indication: ASPIRATION
  8. LINEZOLID. [Interacting]
     Active Substance: LINEZOLID
     Indication: ASPIRATION TRACHEAL
  9. DOPAMINE [Interacting]
     Active Substance: DOPAMINE\DOPAMINE HYDROCHLORIDE
     Indication: PULMONARY ARTERIAL PRESSURE ABNORMAL
     Dosage: UNK
     Route: 041

REACTIONS (3)
  - Tachycardia [Recovered/Resolved]
  - Drug interaction [Unknown]
  - Hypertension [Recovered/Resolved]
